FAERS Safety Report 12648121 (Version 1)
Quarter: 2016Q3

REPORT INFORMATION
  Report Type: Spontaneous
  Country: US (occurrence: None)
  Receive Date: 20160811
  Receipt Date: 20160811
  Transmission Date: 20161109
  Serious: No
  Sender: FDA-Public Use
  Company Number: None

PATIENT
  Age: 62 Year
  Sex: Female

DRUGS (5)
  1. FORTEO [Suspect]
     Active Substance: TERIPARATIDE
     Indication: CHRONIC KIDNEY DISEASE
  2. FORTEO [Suspect]
     Active Substance: TERIPARATIDE
     Indication: SYSTEMIC LUPUS ERYTHEMATOSUS
  3. FORTEO [Suspect]
     Active Substance: TERIPARATIDE
     Indication: OSTEOPOROSIS
  4. FORTEO [Suspect]
     Active Substance: TERIPARATIDE
     Indication: HYPOTHYROIDISM
  5. FORTEO [Suspect]
     Active Substance: TERIPARATIDE
     Indication: ESSENTIAL HYPERTENSION

REACTIONS (1)
  - Alopecia [None]

NARRATIVE: CASE EVENT DATE: 20160810
